FAERS Safety Report 24840776 (Version 1)
Quarter: 2025Q1

REPORT INFORMATION
  Report Type: Spontaneous
  Country: US (occurrence: US)
  Receive Date: 20250114
  Receipt Date: 20250114
  Transmission Date: 20250409
  Serious: No
  Sender: IPSEN BIOPHARMACEUTICALS, INC.
  Company Number: US-IPSEN Group, Research and Development-2025-00859

PATIENT
  Sex: Female

DRUGS (3)
  1. DYSPORT [Suspect]
     Active Substance: ABOBOTULINUMTOXINA
     Indication: Skin wrinkling
     Route: 065
     Dates: start: 20250102, end: 20250102
  2. DYSPORT [Suspect]
     Active Substance: ABOBOTULINUMTOXINA
     Indication: Skin wrinkling
  3. DYSPORT [Suspect]
     Active Substance: ABOBOTULINUMTOXINA
     Indication: Off label use

REACTIONS (6)
  - Hypoaesthesia [Not Recovered/Not Resolved]
  - Feeling hot [Not Recovered/Not Resolved]
  - Swelling face [Not Recovered/Not Resolved]
  - Facial pain [Not Recovered/Not Resolved]
  - Off label use [Unknown]
  - Product preparation error [Unknown]

NARRATIVE: CASE EVENT DATE: 20250101
